FAERS Safety Report 5306487-4 (Version None)
Quarter: 2007Q2

REPORT INFORMATION
  Report Type: 
  Country: None (occurrence: None)
  Receive Date: 20070416
  Receipt Date: 20070405
  Transmission Date: 20071010
  Serious: Yes (Other)
  Sender: FDA-Public Use
  Company Number: 2007SP005188

PATIENT
  Age: 59 Year
  Sex: Male

DRUGS (1)
  1. EPTIFIBATIDE (S-P) (EPTIFIBATIDE) [Suspect]
     Indication: DRUG USE FOR UNKNOWN INDICATION
     Dosage: ONCE;INBO
     Dates: start: 20070301, end: 20070301

REACTIONS (1)
  - ANAPHYLACTIC SHOCK [None]
